FAERS Safety Report 24162490 (Version 1)
Quarter: 2024Q3

REPORT INFORMATION
  Report Type: Spontaneous
  Country: US (occurrence: None)
  Receive Date: 20240731
  Receipt Date: 20240731
  Transmission Date: 20241017
  Serious: Yes (Disabling, Other)
  Sender: Public
  Company Number: None

PATIENT
  Age: 69 Year
  Sex: Female
  Weight: 63.54 kg

DRUGS (1)
  1. RECLAST [Suspect]
     Active Substance: ZOLEDRONIC ACID
     Indication: Osteoporosis
     Dates: start: 20240722, end: 20240722

REACTIONS (9)
  - Nausea [None]
  - Infusion related reaction [None]
  - Dyspnoea [None]
  - Asthenia [None]
  - Influenza like illness [None]
  - Arthralgia [None]
  - Myalgia [None]
  - Muscle spasms [None]
  - Fall [None]

NARRATIVE: CASE EVENT DATE: 20240722
